FAERS Safety Report 13602245 (Version 2)
Quarter: 2017Q2

REPORT INFORMATION
  Report Type: Spontaneous
  Country: CH (occurrence: DE)
  Receive Date: 20170601
  Receipt Date: 20170608
  Transmission Date: 20170830
  Serious: Yes (Hospitalization)
  Sender: FDA-Public Use
  Company Number: CH-LPDUSPRD-20170661

PATIENT
  Sex: Male
  Weight: 89 kg

DRUGS (7)
  1. IRON [Concomitant]
     Active Substance: IRON
     Dosage: DOSE NOT PROVIDED
     Route: 065
  2. CALCIUM [Concomitant]
     Active Substance: CALCIUM
     Dosage: DOSE NOT PROVIDED
     Route: 065
  3. CITALOPRAM [Concomitant]
     Active Substance: CITALOPRAM HYDROBROMIDE
     Dosage: 40 MG 1 IN 1 D
     Route: 065
  4. REDUCTO SPEZIAL [Concomitant]
     Active Substance: POTASSIUM PHOSPHATE, MONOBASIC\SODIUM PHOSPHATE, DIBASIC, ANHYDROUS
     Dosage: DOSE NOT PROVIDED
     Route: 065
  5. SODIUM PHOSPHATE [Concomitant]
     Active Substance: SODIUM PHOSPHATE
     Dosage: DOSE NOT PROVIDED
     Route: 065
  6. DEKRISTROL [Concomitant]
     Dosage: 20000 IU, 1 IN 4 WK
     Route: 065
  7. FERINJECT [Suspect]
     Active Substance: FERRIC CARBOXYMALTOSE
     Dosage: 500 MG SINCE 3 YEARS AGO
     Route: 065

REACTIONS (14)
  - Nasal operation [Unknown]
  - Hypophosphataemia [Unknown]
  - Fibroblast growth factor 23 increased [Unknown]
  - Hiatus hernia [Unknown]
  - Osteochondrosis [Unknown]
  - Complex regional pain syndrome [Unknown]
  - Meniscus removal [Unknown]
  - Lipoma [Unknown]
  - Renal injury [Unknown]
  - Malabsorption [Unknown]
  - Thyroid mass [Unknown]
  - Vitamin D deficiency [Unknown]
  - Diverticulum intestinal [Unknown]
  - Depression [Unknown]
